FAERS Safety Report 6194129-8 (Version None)
Quarter: 2009Q2

REPORT INFORMATION
  Report Type: 
  Country: None (occurrence: None)
  Receive Date: 20090518
  Receipt Date: 20090513
  Transmission Date: 20091009
  Serious: Yes (Hospitalization)
  Sender: FDA-Public Use
  Company Number: PHHO2009US06035

PATIENT
  Sex: Male
  Weight: 100 kg

DRUGS (1)
  1. RAD 666 RAD+TAB [Suspect]
     Indication: METASTATIC RENAL CELL CARCINOMA
     Dosage: 10 MG
     Route: 048

REACTIONS (3)
  - BLOOD CREATININE INCREASED [None]
  - HYPOTENSION [None]
  - THROMBOCYTOPENIA [None]
